FAERS Safety Report 21758252 (Version 1)
Quarter: 2022Q4

REPORT INFORMATION
  Report Type: Spontaneous
  Country: FR (occurrence: FR)
  Receive Date: 20221221
  Receipt Date: 20221221
  Transmission Date: 20230112
  Serious: Yes (Hospitalization)
  Sender: FDA-Public Use
  Company Number: FR-SUN PHARMACEUTICAL INDUSTRIES LTD-2022RR-369606

PATIENT
  Age: 91 Year
  Sex: Female

DRUGS (4)
  1. ACETAMINOPHEN [Suspect]
     Active Substance: ACETAMINOPHEN
     Indication: Pain
     Dosage: UNK
     Route: 048
     Dates: end: 20221020
  2. AMIODARONE [Suspect]
     Active Substance: AMIODARONE
     Indication: Cardiovascular event prophylaxis
     Dosage: 100 MILLIGRAM, DAILY
     Route: 048
     Dates: end: 20221020
  3. PANTOPRAZOLE [Suspect]
     Active Substance: PANTOPRAZOLE
     Indication: Product used for unknown indication
     Dosage: 20 MILLIGRAM, DAILY
     Route: 048
     Dates: end: 20221020
  4. ATORVASTATIN [Suspect]
     Active Substance: ATORVASTATIN
     Indication: Cardiovascular event prophylaxis
     Dosage: 40 MILLIGRAM, DAILY
     Route: 048
     Dates: end: 20221020

REACTIONS (2)
  - Hepatitis [Recovered/Resolved]
  - Urticaria [Recovered/Resolved]

NARRATIVE: CASE EVENT DATE: 20221005
